FAERS Safety Report 6131148-1 (Version None)
Quarter: 2009Q1

REPORT INFORMATION
  Report Type: 
  Country: None (occurrence: None)
  Receive Date: 20090325
  Receipt Date: 20090310
  Transmission Date: 20090719
  Serious: Yes (Other)
  Sender: FDA-Public Use
  Company Number: US-PFIZER INC-2005109273

PATIENT
  Sex: Female
  Weight: 54 kg

DRUGS (10)
  1. PROVERA [Suspect]
     Indication: HORMONE REPLACEMENT THERAPY
     Dosage: UNK
     Route: 048
     Dates: start: 19890101, end: 19960101
  2. PROVERA [Suspect]
     Indication: HOT FLUSH
  3. PREMARIN [Suspect]
     Indication: HORMONE REPLACEMENT THERAPY
     Dosage: UNK
     Dates: start: 19890101, end: 19960101
  4. PREMARIN [Suspect]
     Indication: HOT FLUSH
  5. PREMPRO [Suspect]
     Indication: HORMONE REPLACEMENT THERAPY
     Dates: start: 19890101, end: 19980101
  6. PREMPRO [Suspect]
     Indication: HOT FLUSH
  7. ALPRAZOLAM [Concomitant]
     Indication: DEPRESSION
     Dosage: UNK
     Dates: start: 19960101
  8. ZOLOFT [Concomitant]
     Indication: DEPRESSION
     Dosage: UNK
     Dates: start: 19960101
  9. DYAZIDE [Concomitant]
     Indication: POLYURIA
     Dosage: UNK
     Dates: start: 19960101
  10. METHOCARBAMOL [Concomitant]
     Indication: HYPOTONIA
     Dosage: UNK
     Dates: start: 19960101

REACTIONS (1)
  - BREAST CANCER FEMALE [None]
